FAERS Safety Report 20207340 (Version 1)
Quarter: 2021Q4

REPORT INFORMATION
  Report Type: Spontaneous
  Country: US (occurrence: None)
  Receive Date: 20211219
  Receipt Date: 20211219
  Transmission Date: 20220303
  Serious: Yes (Life-Threatening, Hospitalization)
  Sender: FDA-Public Use
  Company Number: None

PATIENT
  Age: 37 Year
  Sex: Male
  Weight: 120 kg

DRUGS (1)
  1. AMPICILLIN [Suspect]
     Active Substance: AMPICILLIN
     Indication: Otitis media
     Dosage: FREQUENCY : DAILY;?
     Route: 048
     Dates: start: 20211025, end: 20211025

REACTIONS (5)
  - Erythema [None]
  - Pruritus [None]
  - Chest discomfort [None]
  - Urticaria [None]
  - Anaphylactic reaction [None]

NARRATIVE: CASE EVENT DATE: 20211025
